FAERS Safety Report 21946617 (Version 1)
Quarter: 2023Q1

REPORT INFORMATION
  Report Type: Spontaneous
  Country: US (occurrence: US)
  Receive Date: 20230202
  Receipt Date: 20230202
  Transmission Date: 20230418
  Serious: Yes (Death, Hospitalization, Other)
  Sender: FDA-Public Use
  Company Number: US-PFIZER INC-202300044215

PATIENT
  Age: 75 Year
  Sex: Male

DRUGS (3)
  1. POTASSIUM PHOSPHATES [Suspect]
     Active Substance: POTASSIUM PHOSPHATE, DIBASIC\POTASSIUM PHOSPHATE, MONOBASIC
     Dosage: 20 MEQ
     Route: 051
  2. CALCIUM GLUCONATE [Suspect]
     Active Substance: CALCIUM GLUCONATE
     Dosage: 2 G
     Route: 051
  3. SODIUM CHLORIDE [Concomitant]
     Active Substance: SODIUM CHLORIDE
     Dosage: 250 ML BAG OF 0.9% SODIUM CHLORIDE
     Route: 051

REACTIONS (9)
  - Medication error [Fatal]
  - Hypotension [Fatal]
  - Cardiac arrest [Fatal]
  - Pulmonary oedema [Unknown]
  - Flushing [Unknown]
  - Hypoxia [Unknown]
  - Dyspnoea [Unknown]
  - Unresponsive to stimuli [Unknown]
  - Hyperventilation [Unknown]

NARRATIVE: CASE EVENT DATE: 20210101
